FAERS Safety Report 5802686-3 (Version None)
Quarter: 2008Q3

REPORT INFORMATION
  Report Type: 
  Country: None (occurrence: None)
  Receive Date: 20080703
  Receipt Date: 20080625
  Transmission Date: 20090109
  Serious: Yes (Hospitalization)
  Sender: FDA-Public Use
  Company Number: E2020-02971-SPO-JP

PATIENT
  Age: 81 Year
  Sex: Male

DRUGS (5)
  1. ARICEPT [Suspect]
     Dosage: ORAL; 3 MG, 1 IN 1 D, ORAL
     Route: 048
     Dates: start: 20071201, end: 20080301
  2. ARICEPT [Suspect]
     Dosage: ORAL; 3 MG, 1 IN 1 D, ORAL
     Route: 048
     Dates: start: 20080612, end: 20080624
  3. DIOVAN [Concomitant]
  4. BUP-4 (PROPIVERINE HYDROCHLORIDE) [Concomitant]
  5. MUCOSTA (REBAMIPIDE) [Concomitant]

REACTIONS (3)
  - ANAEMIA [None]
  - PYREXIA [None]
  - WHITE BLOOD CELL COUNT DECREASED [None]
